FAERS Safety Report 6487209-0 (Version None)
Quarter: 2009Q4

REPORT INFORMATION
  Report Type: 
  Country: None (occurrence: None)
  Receive Date: 20091210
  Receipt Date: 20091130
  Transmission Date: 20100525
  Serious: Yes (Other)
  Sender: FDA-Public Use
  Company Number: DE-ALEXION-A200901033

PATIENT

DRUGS (2)
  1. SOLIRIS 300MG [Suspect]
     Indication: PAROXYSMAL NOCTURNAL HAEMOGLOBINURIA
     Dosage: ACCORDING TO RECOMMENDED SCHEME
     Route: 042
     Dates: start: 20071201
  2. SOLIRIS 300MG [Suspect]
     Dosage: 900 MG, Q14D
     Route: 042

REACTIONS (2)
  - DRUG INEFFECTIVE [None]
  - HAEMOLYSIS [None]
